FAERS Safety Report 4534590-5 (Version None)
Quarter: 2004Q4

REPORT INFORMATION
  Report Type: 
  Country: None (occurrence: None)
  Receive Date: 20041214
  Receipt Date: 20040726
  Transmission Date: 20050328
  Serious: No
  Sender: FDA-Public Use
  Company Number: USA040773165

PATIENT
  Age: 66 Year
  Sex: Male

DRUGS (2)
  1. CIALIS [Suspect]
     Indication: ERECTILE DYSFUNCTION
     Dosage: 10 MG
     Dates: start: 20040716
  2. CRESTOR (ROSUVASTATIN SODIUM) [Concomitant]

REACTIONS (7)
  - DIZZINESS [None]
  - DYSPEPSIA [None]
  - DYSSTASIA [None]
  - HEADACHE [None]
  - MIDDLE INSOMNIA [None]
  - NASAL CONGESTION [None]
  - NAUSEA [None]
